FAERS Safety Report 6544033-8 (Version None)
Quarter: 2010Q1

REPORT INFORMATION
  Report Type: 
  Country: None (occurrence: None)
  Receive Date: 20100119
  Receipt Date: 20100119
  Transmission Date: 20100710
  Serious: Yes (Other)
  Sender: FDA-Public Use
  Company Number: None

PATIENT
  Sex: Female
  Weight: 89.3586 kg

DRUGS (1)
  1. PHENYLEPHRINE HCL [Suspect]
     Indication: SINUSITIS
     Dosage: 2 PILLS 4-6 HOURS PO
     Route: 048
     Dates: start: 20100112, end: 20100113

REACTIONS (8)
  - DYSPNOEA [None]
  - HYPERSENSITIVITY [None]
  - LIP SWELLING [None]
  - PRURITUS [None]
  - REACTION TO DRUG EXCIPIENTS [None]
  - SKIN SWELLING [None]
  - SWELLING FACE [None]
  - URTICARIA [None]
